FAERS Safety Report 5834903-8 (Version None)
Quarter: 2008Q3

REPORT INFORMATION
  Report Type: 
  Country: None (occurrence: None)
  Receive Date: 20080804
  Receipt Date: 20080724
  Transmission Date: 20090109
  Serious: Yes (Hospitalization)
  Sender: FDA-Public Use
  Company Number: 002897

PATIENT
  Age: 22 Year
  Sex: Female

DRUGS (11)
  1. BUSULFEX [Suspect]
     Indication: STEM CELL TRANSPLANT
     Dosage: 15 ML, INTRAVENOUS; 20 ML, DAILY DOSE; INTRAVENOUS
     Route: 042
     Dates: start: 20070211, end: 20070211
  2. BUSULFEX [Suspect]
     Indication: STEM CELL TRANSPLANT
     Dosage: 15 ML, INTRAVENOUS; 20 ML, DAILY DOSE; INTRAVENOUS
     Route: 042
     Dates: start: 20070212, end: 20070212
  3. BUSULFEX [Suspect]
     Indication: STEM CELL TRANSPLANT
     Dosage: 15 ML, INTRAVENOUS; 20 ML, DAILY DOSE; INTRAVENOUS
     Route: 042
     Dates: start: 20070213, end: 20070213
  4. FLUDARABINE PHOSPHATE [Concomitant]
  5. MELPHALAN (MELPHALAN) [Concomitant]
  6. VALPROATE SODIUM [Concomitant]
  7. LENOGRASTIM (LENOGRASTIM) [Concomitant]
  8. TACROLIMUS [Concomitant]
  9. SULFAMETHOXAZOLE W TRIMETHOPRIM (SULFAMETHOXAZOLE, TRIMETHOPRIM) [Concomitant]
  10. VORICONAZOLE (VORICONAZOLE) [Concomitant]
  11. CEFEPIME HYDROCHLORIDE (CEFEPIME HYDROCHLORIDE) [Concomitant]

REACTIONS (10)
  - ACUTE GRAFT VERSUS HOST DISEASE [None]
  - ANOREXIA [None]
  - DIARRHOEA [None]
  - ENCEPHALITIS VIRAL [None]
  - GAMMA-GLUTAMYLTRANSFERASE INCREASED [None]
  - MALAISE [None]
  - NAUSEA [None]
  - PIGMENTATION DISORDER [None]
  - STOMATITIS [None]
  - VOMITING [None]
